FAERS Safety Report 19821915 (Version 1)
Quarter: 2021Q3

REPORT INFORMATION
  Report Type: Spontaneous
  Country: US (occurrence: US)
  Receive Date: 20210913
  Receipt Date: 20210913
  Transmission Date: 20211014
  Serious: No
  Sender: FDA-Public Use
  Company Number: None

PATIENT
  Age: 67 Year
  Sex: Female
  Weight: 81 kg

DRUGS (1)
  1. REGEN?COV [Suspect]
     Active Substance: CASIRIVIMAB\IMDEVIMAB
     Indication: COVID-19
     Dosage: ?          OTHER FREQUENCY:X1;?
     Route: 042
     Dates: start: 20210910, end: 20210910

REACTIONS (9)
  - Lacrimation increased [None]
  - Oxygen saturation decreased [None]
  - Heart rate decreased [None]
  - Infusion related reaction [None]
  - Flushing [None]
  - Blood pressure increased [None]
  - Malaise [None]
  - Dyspnoea [None]
  - Ocular hyperaemia [None]

NARRATIVE: CASE EVENT DATE: 20210910
